FAERS Safety Report 24007663 (Version 2)
Quarter: 2024Q3

REPORT INFORMATION
  Report Type: Spontaneous
  Country: US (occurrence: US)
  Receive Date: 20240625
  Receipt Date: 20240823
  Transmission Date: 20241016
  Serious: No
  Sender: RISING PHARMACEUTICALS
  Company Number: US-RISINGPHARMA-US-2024RISSPO00208

PATIENT
  Age: 81 Year
  Sex: Male
  Weight: 180 kg

DRUGS (1)
  1. GABAPENTIN [Suspect]
     Active Substance: GABAPENTIN
     Indication: Neuropathy peripheral
     Route: 048

REACTIONS (1)
  - Drug ineffective for unapproved indication [Unknown]
